FAERS Safety Report 24138596 (Version 2)
Quarter: 2024Q3

REPORT INFORMATION
  Report Type: Spontaneous
  Country: US (occurrence: US)
  Receive Date: 20240725
  Receipt Date: 20240808
  Transmission Date: 20241016
  Serious: Yes (Other)
  Sender: JOHNSON AND JOHNSON
  Company Number: US-JNJFOC-20240753318

PATIENT
  Sex: Male

DRUGS (2)
  1. ZYTIGA [Suspect]
     Active Substance: ABIRATERONE ACETATE
     Indication: Prostate cancer
     Route: 048
  2. PREDNISONE [Concomitant]
     Active Substance: PREDNISONE

REACTIONS (6)
  - Cerebrovascular accident [Unknown]
  - Urinary retention [Unknown]
  - Dysuria [Unknown]
  - Pollakiuria [Unknown]
  - Blood urine present [Unknown]
  - Micturition urgency [Unknown]
